FAERS Safety Report 24534509 (Version 2)
Quarter: 2024Q4

REPORT INFORMATION
  Report Type: Spontaneous
  Country: RU (occurrence: RU)
  Receive Date: 20241022
  Receipt Date: 20241029
  Transmission Date: 20250115
  Serious: Yes (Hospitalization, Other)
  Sender: ABBVIE
  Company Number: RU-ABBVIE-5969204

PATIENT
  Age: 83 Year
  Sex: Male

DRUGS (5)
  1. UPADACITINIB [Suspect]
     Active Substance: UPADACITINIB
     Indication: Rheumatoid arthritis
     Route: 048
     Dates: start: 202302
  2. UPADACITINIB [Suspect]
     Active Substance: UPADACITINIB
     Indication: Rheumatoid arthritis
     Route: 048
     Dates: start: 201610, end: 202204
  3. FENOTEROL [Concomitant]
     Active Substance: FENOTEROL
     Indication: Chronic obstructive pulmonary disease
     Dates: start: 201605
  4. IPRATROPIUM BROMIDE [Concomitant]
     Active Substance: IPRATROPIUM BROMIDE
     Indication: Chronic obstructive pulmonary disease
     Dates: start: 201605
  5. MELOXICAM [Concomitant]
     Active Substance: MELOXICAM
     Indication: Pain
     Route: 065
     Dates: start: 202202

REACTIONS (9)
  - Pulmonary fibrosis [Unknown]
  - Respiratory tract infection viral [Recovered/Resolved]
  - COVID-19 [Recovered/Resolved]
  - Basal cell carcinoma [Recovered/Resolved]
  - Atelectasis [Unknown]
  - Emphysema [Unknown]
  - Osteopenia [Unknown]
  - Osteochondrosis [Unknown]
  - Spinal osteoarthritis [Unknown]

NARRATIVE: CASE EVENT DATE: 20220207
